FAERS Safety Report 9674738 (Version 1)
Quarter: 2013Q4

REPORT INFORMATION
  Report Type: Spontaneous
  Country: US (occurrence: US)
  Receive Date: 20131107
  Receipt Date: 20131107
  Transmission Date: 20140711
  Serious: Yes (Hospitalization)
  Sender: FDA-Public Use
  Company Number: US-BAYER-2013-134659

PATIENT
  Sex: Female

DRUGS (10)
  1. YASMIN [Suspect]
  2. OCELLA [Suspect]
  3. CIPROFLOXACIN [Concomitant]
     Dosage: 500 MG, UNK
     Dates: start: 20100428
  4. HYDROCODONE [Concomitant]
     Dosage: UNK
     Dates: start: 20100428
  5. OXYCODONE [Concomitant]
     Dosage: UNK
     Dates: start: 20100505
  6. MORPHINE [Concomitant]
     Dosage: UNK
     Dates: start: 20100505
  7. PROMETHAZINE [Concomitant]
     Dosage: 25 MG, UNK
     Dates: start: 20100517
  8. TRAMADOL [Concomitant]
     Dosage: 50 MG, UNK
     Dates: start: 20100518
  9. NAPROXEN [Concomitant]
     Dosage: 250 MG, UNK
     Dates: start: 20100525
  10. ZOFRAN [Concomitant]
     Dosage: UNK
     Dates: start: 20100619

REACTIONS (2)
  - Colitis ischaemic [None]
  - Thrombophlebitis superficial [None]
